FAERS Safety Report 10134616 (Version 2)
Quarter: 2014Q2

REPORT INFORMATION
  Report Type: Spontaneous
  Country: US (occurrence: US)
  Receive Date: 20140428
  Receipt Date: 20140505
  Transmission Date: 20141212
  Serious: Yes (Hospitalization)
  Sender: FDA-Public Use
  Company Number: US-BAXTER-2014BAX020131

PATIENT
  Age: 35 Year
  Sex: Male

DRUGS (4)
  1. DIANEAL LOW CALCIUM [Suspect]
     Indication: PERITONEAL DIALYSIS
     Route: 033
     Dates: start: 20140205
  2. DIANEAL LOW CALCIUM [Suspect]
     Route: 033
     Dates: start: 20140205
  3. DIANEAL LOW CALCIUM [Suspect]
     Indication: PERITONEAL DIALYSIS
     Route: 033
     Dates: start: 20140205
  4. DIANEAL LOW CALCIUM [Suspect]
     Route: 033
     Dates: start: 20140205

REACTIONS (1)
  - Pneumonia [Recovered/Resolved]
